FAERS Safety Report 7118464-1 (Version None)
Quarter: 2010Q4

REPORT INFORMATION
  Report Type: 
  Country: None (occurrence: None)
  Receive Date: 20101123
  Receipt Date: 20101116
  Transmission Date: 20110411
  Serious: Yes (Death, Life-Threatening, Hospitalization)
  Sender: FDA-Public Use
  Company Number: FR-ELI_LILLY_AND_COMPANY-FR201011004472

PATIENT
  Sex: Male

DRUGS (11)
  1. EFFIENT [Suspect]
     Indication: ANGIOPLASTY
     Dosage: UNK, UNKNOWN
     Route: 065
     Dates: start: 20100801
  2. PREVISCAN [Concomitant]
     Indication: ANTICOAGULANT THERAPY
  3. KARDEGIC [Concomitant]
  4. CARDENSIEL [Concomitant]
  5. CORDARONE [Concomitant]
  6. LASIX [Concomitant]
  7. ENALAPRIL MALEATE [Concomitant]
  8. ZOCOR [Concomitant]
  9. KAYEXALATE [Concomitant]
  10. ZYLORIC [Concomitant]
  11. ALCOHOL [Concomitant]

REACTIONS (4)
  - BRAIN HERNIATION [None]
  - CEREBRAL HAEMATOMA [None]
  - SUBDURAL HAEMATOMA [None]
  - VENTRICULAR TACHYCARDIA [None]
